FAERS Safety Report 7241546-0 (Version None)
Quarter: 2011Q1

REPORT INFORMATION
  Report Type: 
  Country: None (occurrence: None)
  Receive Date: 20110124
  Receipt Date: 20110121
  Transmission Date: 20110831
  Serious: Yes (Hospitalization)
  Sender: FDA-Public Use
  Company Number: IT-SANOFI-AVENTIS-2010SA061053

PATIENT
  Age: 60 Year
  Sex: Male

DRUGS (5)
  1. CISPLATIN [Suspect]
     Indication: HEAD AND NECK CANCER
     Route: 041
     Dates: start: 20100920, end: 20100920
  2. 5-FU [Suspect]
     Indication: HEAD AND NECK CANCER
     Route: 041
     Dates: start: 20100924, end: 20100924
  3. LISINOPRIL AND HYDROCHLOROTHIAZIDE [Concomitant]
     Dates: end: 20100923
  4. CIPROFLOXACINA [Concomitant]
     Dates: end: 20100928
  5. TAXOTERE [Suspect]
     Indication: HEAD AND NECK CANCER
     Route: 041
     Dates: start: 20100920, end: 20100920

REACTIONS (6)
  - ELECTROLYTE IMBALANCE [None]
  - DYSPHAGIA [None]
  - HYPONATRAEMIA [None]
  - HYPOTENSION [None]
  - FEBRILE NEUTROPENIA [None]
  - STOMATITIS [None]
